FAERS Safety Report 8371127-7 (Version None)
Quarter: 2012Q2

REPORT INFORMATION
  Report Type: 
  Country: None (occurrence: None)
  Receive Date: 20120518
  Receipt Date: 20120509
  Transmission Date: 20120825
  Serious: Yes (Hospitalization, Disabling)
  Sender: FDA-Public Use
  Company Number: FR-ASTRAZENECA-2012SE30362

PATIENT
  Age: 12568 Day
  Sex: Male

DRUGS (5)
  1. AMITRIPTYLINE HCL [Concomitant]
     Route: 048
     Dates: start: 20100901, end: 20110301
  2. ZOMIG [Suspect]
     Route: 048
     Dates: start: 20100901, end: 20110301
  3. METOCLOPRAMIDE [Suspect]
     Route: 048
     Dates: start: 20101001, end: 20110301
  4. INDORAMIN [Concomitant]
     Route: 048
     Dates: start: 20100901, end: 20110301
  5. ASPIRIN [Suspect]
     Route: 048
     Dates: start: 20100801, end: 20100901

REACTIONS (1)
  - ISCHAEMIC STROKE [None]
